FAERS Safety Report 4893676-6 (Version None)
Quarter: 2005Q4

REPORT INFORMATION
  Report Type: 
  Country: None (occurrence: None)
  Receive Date: 20051223
  Receipt Date: 20050921
  Transmission Date: 20060501
  Serious: No
  Sender: FDA-Public Use
  Company Number: 2005PV002338

PATIENT
  Age: 44 Year
  Sex: Female
  Weight: 87.9978 kg

DRUGS (6)
  1. SYMLIN [Suspect]
     Indication: DIABETES MELLITUS NON-INSULIN-DEPENDENT
     Dosage: 90 MCG;TID;SC ; 60 MCG;SC
     Route: 058
     Dates: start: 20050906, end: 20050920
  2. SYMLIN [Suspect]
     Indication: DIABETES MELLITUS NON-INSULIN-DEPENDENT
     Dosage: 90 MCG;TID;SC ; 60 MCG;SC
     Route: 058
     Dates: start: 20050920
  3. LANTUS [Concomitant]
  4. AVANDIA [Concomitant]
  5. METFORMIN HYDROCHLORIDE [Concomitant]
  6. SYNTHROID [Concomitant]

REACTIONS (3)
  - BLOOD GLUCOSE DECREASED [None]
  - FEELING ABNORMAL [None]
  - HYPOAESTHESIA ORAL [None]
